FAERS Safety Report 13272007 (Version 1)
Quarter: 2017Q1

REPORT INFORMATION
  Report Type: Report from Study
  Country: US (occurrence: US)
  Receive Date: 20170227
  Receipt Date: 20170227
  Transmission Date: 20170428
  Serious: Yes (Death, Life-Threatening, Hospitalization, Other)
  Sender: FDA-Public Use
  Company Number: US-BRISTOL-MYERS SQUIBB COMPANY-BMS-2017-013086

PATIENT
  Age: 74 Year
  Sex: Male
  Weight: 64.7 kg

DRUGS (3)
  1. CYTARABINE. [Suspect]
     Active Substance: CYTARABINE
     Indication: ACUTE MYELOID LEUKAEMIA
     Dosage: 1.5 G/M2, QD
     Route: 065
     Dates: start: 20170130, end: 20170203
  2. PRAVASTATIN SODIUM. [Suspect]
     Active Substance: PRAVASTATIN SODIUM
     Indication: ACUTE MYELOID LEUKAEMIA
     Dosage: 1280 MG, QD
     Route: 065
     Dates: start: 20170127, end: 20170203
  3. IDARUBICIN [Suspect]
     Active Substance: IDARUBICIN
     Indication: ACUTE MYELOID LEUKAEMIA
     Dosage: 12 MG/M2, QD
     Route: 065
     Dates: start: 20170130, end: 20170201

REACTIONS (3)
  - Sepsis [Unknown]
  - Respiratory arrest [Fatal]
  - Ileus [Unknown]

NARRATIVE: CASE EVENT DATE: 20170210
